FAERS Safety Report 24049448 (Version 1)
Quarter: 2024Q3

REPORT INFORMATION
  Report Type: Spontaneous
  Country: ES (occurrence: ES)
  Receive Date: 20240704
  Receipt Date: 20240704
  Transmission Date: 20241016
  Serious: Yes (Death)
  Sender: AMGEN
  Company Number: ES-AMGEN-ESPSP2024129132

PATIENT
  Age: 75 Year
  Sex: Male

DRUGS (2)
  1. ROMIPLOSTIM [Suspect]
     Active Substance: ROMIPLOSTIM
     Indication: Immune thrombocytopenia
     Dosage: UNK
     Route: 065
  2. FOSTAMATINIB [Suspect]
     Active Substance: FOSTAMATINIB
     Indication: Immune thrombocytopenia
     Route: 065

REACTIONS (2)
  - Death [Fatal]
  - Therapy non-responder [Unknown]
